FAERS Safety Report 5776245-5 (Version None)
Quarter: 2008Q2

REPORT INFORMATION
  Report Type: 
  Country: None (occurrence: None)
  Receive Date: 20080616
  Receipt Date: 20080606
  Transmission Date: 20081010
  Serious: Yes (Hospitalization)
  Sender: FDA-Public Use
  Company Number: 008-21880-08051077

PATIENT
  Age: 67 Year
  Sex: Male
  Weight: 111.7 kg

DRUGS (13)
  1. REVLIMID [Suspect]
     Indication: MULTIPLE MYELOMA
     Dosage: 15 MG, DAYS 1-21, ORAL
     Route: 048
     Dates: start: 20071029, end: 20071118
  2. DEXAMETHASONE TAB [Suspect]
     Indication: MULTIPLE MYELOMA
     Dosage: 16 MG, DAYS 9-12 + 17-20, ORAL
     Route: 048
     Dates: start: 20071106
  3. OPIOIDS (OPIOIDS) [Concomitant]
  4. ASPIRIN [Concomitant]
  5. NORVASC [Concomitant]
  6. OXYCONTIN [Concomitant]
  7. COLOXYL WITH SENNA (COLOXYL WITH SENNA) [Concomitant]
  8. LASIX [Concomitant]
  9. OXYCODONE HCL [Concomitant]
  10. BONEFOS (CLODRONATE DISODIUM) [Concomitant]
  11. BACTRIM [Concomitant]
  12. LOSEC (OMEPRAZOLE) [Concomitant]
  13. LACTULOSE [Concomitant]

REACTIONS (4)
  - DYSURIA [None]
  - FAECALOMA [None]
  - HAEMATOCRIT DECREASED [None]
  - HAEMOGLOBIN DECREASED [None]
